FAERS Safety Report 11147835 (Version 1)
Quarter: 2015Q2

REPORT INFORMATION
  Report Type: Spontaneous
  Country: US (occurrence: US)
  Receive Date: 20150529
  Receipt Date: 20150529
  Transmission Date: 20150821
  Serious: Yes (Hospitalization, Other)
  Sender: FDA-Public Use
  Company Number: US-ELI_LILLY_AND_COMPANY-US201505006929

PATIENT
  Sex: Female

DRUGS (3)
  1. LEVEMIR [Concomitant]
     Active Substance: INSULIN DETEMIR
  2. HUMALOG [Suspect]
     Active Substance: INSULIN LISPRO
     Indication: TYPE 1 DIABETES MELLITUS
     Dosage: UNK, PRN
     Route: 065
  3. HUMALOG [Suspect]
     Active Substance: INSULIN LISPRO
     Indication: TYPE 1 DIABETES MELLITUS
     Dosage: UNK UNK, PRN
     Route: 065

REACTIONS (8)
  - Coronary artery reocclusion [Unknown]
  - Retinopathy [Unknown]
  - Diabetes mellitus inadequate control [Not Recovered/Not Resolved]
  - Impaired insulin secretion [Unknown]
  - Ketoacidosis [Unknown]
  - Hepatic enzyme abnormal [Unknown]
  - Renal failure [Unknown]
  - Angina pectoris [Unknown]

NARRATIVE: CASE EVENT DATE: 2013
